FAERS Safety Report 22099854 (Version 1)
Quarter: 2023Q1

REPORT INFORMATION
  Report Type: Report from Study
  Country: DE (occurrence: DE)
  Receive Date: 20230315
  Receipt Date: 20230315
  Transmission Date: 20230418
  Serious: Yes (Hospitalization, Other)
  Sender: FDA-Public Use
  Company Number: DE-EMA-DD-20180618-ddevhumanwt-095849

PATIENT
  Age: 59 Year
  Sex: Female
  Weight: 58.4 kg

DRUGS (54)
  1. DOXORUBICIN [Suspect]
     Active Substance: DOXORUBICIN
     Indication: Diffuse large B-cell lymphoma
     Dosage: 85 MG, (INFUSION RATE 10 ML/MIN
     Route: 065
     Dates: start: 20180329, end: 20180329
  2. DOXORUBICIN [Suspect]
     Active Substance: DOXORUBICIN
     Dosage: 85 MG, (INFUSION RATE 16.66 ML/MIN
     Route: 065
     Dates: start: 20180420, end: 20180420
  3. DOXORUBICIN [Suspect]
     Active Substance: DOXORUBICIN
     Dosage: 85 MG, (INFUSION RATE 16.66 ML/MIN
     Route: 065
     Dates: start: 20180515, end: 20180515
  4. DOXORUBICIN [Suspect]
     Active Substance: DOXORUBICIN
     Dosage: 85MG, (INFUSION RATE 16.66 ML/MIN
     Route: 065
     Dates: start: 20180608, end: 20180608
  5. DOXORUBICIN [Suspect]
     Active Substance: DOXORUBICIN
     Dosage: 60 MILLIGRAM
     Route: 065
     Dates: start: 20180710, end: 20180710
  6. DOXORUBICIN [Suspect]
     Active Substance: DOXORUBICIN
     Dosage: 60 MILLIGRAM
     Route: 065
     Dates: start: 20180731, end: 20180731
  7. PREDNISONE [Suspect]
     Active Substance: PREDNISONE
     Indication: Diffuse large B-cell lymphoma
     Dosage: 400 MG, UNK
     Route: 065
     Dates: start: 20180329, end: 20180401
  8. PREDNISONE [Suspect]
     Active Substance: PREDNISONE
     Dosage: 400 MG, UNK
     Route: 065
     Dates: start: 20180421, end: 20180424
  9. PREDNISONE [Suspect]
     Active Substance: PREDNISONE
     Dosage: 400 MG, UNK
     Route: 065
     Dates: start: 20180516, end: 20180519
  10. PREDNISONE [Suspect]
     Active Substance: PREDNISONE
     Dosage: 400 MG, UNK
     Route: 065
     Dates: start: 20180609, end: 20180612
  11. PREDNISONE [Suspect]
     Active Substance: PREDNISONE
     Dosage: 400 MG, UNK
     Route: 065
     Dates: start: 20180711, end: 20180714
  12. PREDNISONE [Suspect]
     Active Substance: PREDNISONE
     Dosage: 400 MG, UNK
     Route: 065
     Dates: start: 20180802, end: 20180805
  13. VINCRISTINE [Suspect]
     Active Substance: VINCRISTINE
     Indication: Diffuse large B-cell lymphoma
     Dosage: 2 MG, (INFUSION RATE 10 ML/MIN
     Route: 065
     Dates: start: 20180329, end: 20180329
  14. VINCRISTINE [Suspect]
     Active Substance: VINCRISTINE
     Dosage: 2 MG, (INFUSION RATE 16.66 ML/MIN
     Route: 065
     Dates: start: 20180420, end: 20180420
  15. VINCRISTINE [Suspect]
     Active Substance: VINCRISTINE
     Dosage: 2 MG, (INFUSION RATE 16.66 ML/MIN
     Route: 065
     Dates: start: 20180515, end: 20180515
  16. VINCRISTINE [Suspect]
     Active Substance: VINCRISTINE
     Dosage: 2 MG, (INFUSION RATE 16.66 ML/MIN
     Route: 065
     Dates: start: 20180608, end: 20180608
  17. CYCLOPHOSPHAMIDE [Suspect]
     Active Substance: CYCLOPHOSPHAMIDE
     Indication: Diffuse large B-cell lymphoma
     Dosage: 1250 MG, (INFUSION RATE 4.16 ML/MIN
     Route: 065
     Dates: start: 20180608, end: 20180608
  18. CYCLOPHOSPHAMIDE [Suspect]
     Active Substance: CYCLOPHOSPHAMIDE
     Dosage: 1250 MG, (INFUSION RATE 4.16 ML/MIN
     Route: 065
     Dates: start: 20180420, end: 20180420
  19. CYCLOPHOSPHAMIDE [Suspect]
     Active Substance: CYCLOPHOSPHAMIDE
     Dosage: 1250 MG, (INFUSION RATE 4.16 ML/MIN
     Route: 065
     Dates: start: 20180515, end: 20180515
  20. CYCLOPHOSPHAMIDE [Suspect]
     Active Substance: CYCLOPHOSPHAMIDE
     Dosage: 990 MILLIGRAM
     Route: 065
     Dates: start: 20180928, end: 20180928
  21. CYCLOPHOSPHAMIDE [Suspect]
     Active Substance: CYCLOPHOSPHAMIDE
     Dosage: 1250 MG, (10:00-12:00)
     Route: 065
     Dates: start: 20180329, end: 20180329
  22. CYCLOPHOSPHAMIDE [Suspect]
     Active Substance: CYCLOPHOSPHAMIDE
     Dosage: 890 MILLIGRAM
     Route: 065
     Dates: start: 20180731, end: 20180731
  23. CYCLOPHOSPHAMIDE [Suspect]
     Active Substance: CYCLOPHOSPHAMIDE
     Dosage: 890 MILLIGRAM
     Route: 065
     Dates: start: 20180710, end: 20180710
  24. RITUXIMAB [Suspect]
     Active Substance: RITUXIMAB
     Indication: Diffuse large B-cell lymphoma
     Dosage: 630 MILLIGRAM
     Route: 065
     Dates: start: 20180328, end: 20180328
  25. RITUXIMAB [Suspect]
     Active Substance: RITUXIMAB
     Dosage: 630 MILLIGRAM
     Route: 065
     Dates: start: 20180419, end: 20180419
  26. RITUXIMAB [Suspect]
     Active Substance: RITUXIMAB
     Dosage: 630 MILLIGRAM
     Route: 065
     Dates: start: 20180514, end: 20180514
  27. RITUXIMAB [Suspect]
     Active Substance: RITUXIMAB
     Dosage: 630 MILLIGRAM
     Route: 065
     Dates: start: 20180607, end: 20180607
  28. RITUXIMAB [Suspect]
     Active Substance: RITUXIMAB
     Dosage: 600 MILLIGRAM
     Route: 065
     Dates: start: 20180709, end: 20180709
  29. RITUXIMAB [Suspect]
     Active Substance: RITUXIMAB
     Dosage: 600 MILLIGRAM
     Route: 065
     Dates: start: 20180730, end: 20180730
  30. RITUXIMAB [Suspect]
     Active Substance: RITUXIMAB
     Dosage: 600 MILLIGRAM
     Route: 065
     Dates: start: 20180820, end: 20180820
  31. RITUXIMAB [Suspect]
     Active Substance: RITUXIMAB
     Dosage: 600 MILLIGRAM
     Route: 065
     Dates: start: 20180910
  32. HYDROXYCHLOROQUINE [Concomitant]
     Active Substance: HYDROXYCHLOROQUINE
     Indication: Mixed connective tissue disease
     Dosage: 200 MG, UNK
     Route: 065
     Dates: start: 20180327
  33. HYDROXYCHLOROQUINE [Concomitant]
     Active Substance: HYDROXYCHLOROQUINE
     Dosage: 200 MG, UNK
     Route: 065
     Dates: start: 20180607
  34. REVATIO [Concomitant]
     Active Substance: SILDENAFIL CITRATE
     Indication: Pulmonary fibrosis
     Dosage: UNK
     Route: 065
  35. ONDANSETRON [Concomitant]
     Active Substance: ONDANSETRON
     Indication: Prophylaxis
     Dosage: 8 MG, UNK
     Route: 065
     Dates: start: 20180328
  36. ATORVASTATIN [Concomitant]
     Active Substance: ATORVASTATIN
     Indication: Prophylaxis
     Dosage: 20 MG, UNK
     Route: 065
  37. SIMVASTATIN [Concomitant]
     Active Substance: SIMVASTATIN
     Indication: Product used for unknown indication
     Dosage: 20 MG, UNK
     Route: 065
  38. MESNA [Concomitant]
     Active Substance: MESNA
     Indication: Prophylaxis
     Dosage: UNK,400 OT, UNK
     Route: 065
     Dates: start: 20180328
  39. CHOLECALCIFEROL [Concomitant]
     Active Substance: CHOLECALCIFEROL
     Indication: Product used for unknown indication
     Dosage: UNK,20.000 OT, UNK
     Route: 065
  40. MESNA [Concomitant]
     Active Substance: MESNA
     Indication: Prophylaxis
     Dosage: 400 MG, UNK
     Route: 065
     Dates: start: 20180329
  41. GRANISETRON [Concomitant]
     Active Substance: GRANISETRON
     Indication: Prophylaxis
     Dosage: 1 MG, UNK
     Route: 065
     Dates: start: 20180329
  42. PREDNISOLONE [Concomitant]
     Active Substance: PREDNISOLONE
     Indication: Prophylaxis
     Dosage: 100 MG, UNK
     Route: 065
     Dates: start: 20180328
  43. ACETAMINOPHEN [Concomitant]
     Active Substance: ACETAMINOPHEN
     Indication: Prophylaxis
     Dosage: 1000 MG, UNK
     Route: 065
     Dates: start: 20180328
  44. METHOTREXATE SODIUM [Concomitant]
     Active Substance: METHOTREXATE SODIUM
     Indication: Mixed connective tissue disease
     Dosage: UNK
     Route: 065
     Dates: start: 20180327, end: 20180327
  45. SULFAMETHOXAZOLE\TRIMETHOPRIM [Concomitant]
     Active Substance: SULFAMETHOXAZOLE\TRIMETHOPRIM
     Indication: Prophylaxis
     Dosage: 960 MG, UNK
     Route: 065
     Dates: start: 20180328, end: 20180514
  46. PANTOPRAZOLE SODIUM [Concomitant]
     Active Substance: PANTOPRAZOLE SODIUM
     Indication: Product used for unknown indication
     Dosage: 40 MG, UNK
     Route: 065
  47. ACYCLOVIR [Concomitant]
     Active Substance: ACYCLOVIR
     Indication: Prophylaxis
     Dosage: 200 MG, UNK
     Route: 065
     Dates: start: 20180328, end: 20180509
  48. DIMETHINDENE [Concomitant]
     Active Substance: DIMETHINDENE
     Indication: Prophylaxis
     Dosage: 4 MILLIGRAM
     Route: 065
     Dates: start: 20180328
  49. GRANULOCYTE COLONY-STIMULATING FACTOR NOS [Concomitant]
     Active Substance: GRANULOCYTE COLONY-STIMULATING FACTOR NOS
     Indication: Prophylaxis
     Dosage: UNK
     Route: 065
     Dates: start: 20180517, end: 20180522
  50. GRANULOCYTE COLONY-STIMULATING FACTOR NOS [Concomitant]
     Active Substance: GRANULOCYTE COLONY-STIMULATING FACTOR NOS
     Indication: Leukopenia
     Dosage: UNK
     Route: 065
     Dates: start: 20180430, end: 20180503
  51. GRANULOCYTE COLONY-STIMULATING FACTOR NOS [Concomitant]
     Active Substance: GRANULOCYTE COLONY-STIMULATING FACTOR NOS
     Indication: Pancytopenia
     Dosage: UNK
     Route: 065
     Dates: start: 20180723, end: 20180726
  52. GRANULOCYTE COLONY-STIMULATING FACTOR NOS [Concomitant]
     Active Substance: GRANULOCYTE COLONY-STIMULATING FACTOR NOS
     Dosage: UNK
     Route: 065
     Dates: start: 20180810, end: 20180814
  53. GRANULOCYTE COLONY-STIMULATING FACTOR NOS [Concomitant]
     Active Substance: GRANULOCYTE COLONY-STIMULATING FACTOR NOS
     Dosage: UNK
     Route: 065
     Dates: start: 20180802, end: 20180806
  54. FOLIC ACID [Concomitant]
     Active Substance: FOLIC ACID
     Indication: Mixed connective tissue disease
     Dosage: UNK
     Route: 065
     Dates: start: 20180327

REACTIONS (19)
  - Hypotension [Recovered/Resolved]
  - Fungal infection [Recovered/Resolved]
  - General physical health deterioration [Recovered/Resolved]
  - Chronic hepatitis B [Not Recovered/Not Resolved]
  - Spinal fracture [Recovered/Resolved]
  - Anaemia [Not Recovered/Not Resolved]
  - Hypokalaemia [Recovered/Resolved]
  - Neutropenia [Recovered/Resolved]
  - Pyrexia [Recovered/Resolved]
  - Leukopenia [Recovered/Resolved]
  - Thrombocytopenia [Recovered/Resolved]
  - Sepsis [Not Recovered/Not Resolved]
  - Pancytopenia [Recovered/Resolved]
  - Dehydration [Unknown]
  - Urinary tract infection [Recovered/Resolved]
  - Fall [Recovered/Resolved]
  - Osteoarthritis [Not Recovered/Not Resolved]
  - Oral candidiasis [Recovered/Resolved]
  - Rash [Not Recovered/Not Resolved]

NARRATIVE: CASE EVENT DATE: 20180403
